FAERS Safety Report 16626292 (Version 1)
Quarter: 2019Q3

REPORT INFORMATION
  Report Type: Spontaneous
  Country: DE (occurrence: DE)
  Receive Date: 20190724
  Receipt Date: 20190724
  Transmission Date: 20191004
  Serious: Yes (Hospitalization)
  Sender: FDA-Public Use
  Company Number: DE-TEVA-2019-DE-1080256

PATIENT
  Age: 90 Year
  Sex: Male

DRUGS (11)
  1. IBUPROFEN. [Suspect]
     Active Substance: IBUPROFEN
     Dosage: 400 MG, 1-0-1-0; FOR SOME DAYS
     Route: 065
  2. SIMVASTATIN. [Concomitant]
     Active Substance: SIMVASTATIN
     Dosage: 20 MG, 0-0-2-0
  3. LANTUS [Concomitant]
     Active Substance: INSULIN GLARGINE
     Dosage: 20 IU, 22:00
  4. XIPAMID [Concomitant]
     Active Substance: XIPAMIDE
     Dosage: 10 MG, 1-0-0-0
  5. TORASEMID [Concomitant]
     Active Substance: TORSEMIDE
     Dosage: 10 MG, 1-1-0-0
  6. ATROVENT [Concomitant]
     Active Substance: IPRATROPIUM BROMIDE
     Dosage: NK MG, 20-20-20-0, STROKE
     Route: 055
  7. AMLODIPIN [Concomitant]
     Active Substance: AMLODIPINE BESYLATE
     Dosage: 5 MG, 1-0-0-0
  8. SULTANOL [Concomitant]
     Active Substance: ALBUTEROL SULFATE
     Dosage: NK MG, 5-5-5-0, DROPS
     Route: 055
  9. TAMSULOSIN [Concomitant]
     Active Substance: TAMSULOSIN
     Dosage: 0.4 MG, 1-0-0-0
  10. PANTOPRAZOL [Concomitant]
     Active Substance: PANTOPRAZOLE SODIUM
     Dosage: 40 MG, 1-0-1-0
  11. CLOPIDOGREL [Suspect]
     Active Substance: CLOPIDOGREL BISULFATE
     Dosage: 75 MG, 0-1-0-0

REACTIONS (4)
  - Headache [Unknown]
  - Dyspnoea [Unknown]
  - Chest pain [Unknown]
  - Anaemia [Unknown]
